FAERS Safety Report 8852121 (Version 1)
Quarter: 2012Q4

REPORT INFORMATION
  Report Type: 
  Country: US (occurrence: US)
  Receive Date: 20121022
  Receipt Date: 20121022
  Transmission Date: 20130627
  Serious: Yes (Other)
  Sender: FDA-Public Use
  Company Number: US-PFIZER INC-2012260796

PATIENT
  Age: 74 Year
  Sex: Female
  Weight: 64.4 kg

DRUGS (4)
  1. CELEBREX [Suspect]
     Indication: ARTHRITIS
     Dosage: 200 mg, daily
     Route: 048
     Dates: start: 2004
  2. NEURONTIN [Suspect]
     Indication: NEUROPATHY PERIPHERAL
     Dosage: 1200 mg, 4x/day
     Route: 048
     Dates: start: 2004
  3. HYDROCHLOROTHIAZIDE [Concomitant]
     Indication: HYPERTENSION
     Dosage: 12.5 mg, daily
  4. ATENOLOL [Concomitant]
     Indication: HYPERTENSION
     Dosage: one half of 25 mg, daily

REACTIONS (1)
  - Pancreatic carcinoma [Not Recovered/Not Resolved]
